FAERS Safety Report 10394007 (Version 1)
Quarter: 2014Q3

REPORT INFORMATION
  Report Type: Spontaneous
  Country: US (occurrence: None)
  Receive Date: 20140818
  Receipt Date: 20140818
  Transmission Date: 20150326
  Serious: Yes (Death)
  Sender: FDA-Public Use
  Company Number: INS201408-000159

PATIENT
  Age: 57 Year

DRUGS (1)
  1. SUBSYS [Suspect]
     Active Substance: FENTANYL
     Dosage: 400 MCG (180 UNITS)

REACTIONS (1)
  - Death [None]

NARRATIVE: CASE EVENT DATE: 20131210
